FAERS Safety Report 14009366 (Version 1)
Quarter: 2017Q3

REPORT INFORMATION
  Report Type: Spontaneous
  Country: US (occurrence: US)
  Receive Date: 20170925
  Receipt Date: 20170925
  Transmission Date: 20171128
  Serious: Yes (Hospitalization)
  Sender: FDA-Public Use
  Company Number: US-LPDUSPRD-20171298

PATIENT
  Age: 59 Year
  Sex: Female

DRUGS (4)
  1. LEVITIRACETAM [Concomitant]
     Active Substance: LEVETIRACETAM
     Dosage: UNKNOWN
     Route: 065
  2. PHENYTOIN SODIUM INJECTION (40042-009-02) [Suspect]
     Active Substance: PHENYTOIN SODIUM
     Dosage: UNKNOWN
     Route: 065
  3. FLECAINIDE [Suspect]
     Active Substance: FLECAINIDE
     Dosage: UNKNOWN
     Route: 065
  4. LACOSAMIDE. [Concomitant]
     Active Substance: LACOSAMIDE
     Dosage: UNKNOWN
     Route: 065

REACTIONS (3)
  - Toxicity to various agents [Recovering/Resolving]
  - Drug reaction with eosinophilia and systemic symptoms [Recovering/Resolving]
  - Bradyarrhythmia [Recovering/Resolving]
